FAERS Safety Report 21919828 (Version 6)
Quarter: 2023Q1

REPORT INFORMATION
  Report Type: Spontaneous
  Country: US (occurrence: US)
  Receive Date: 20230127
  Receipt Date: 20230321
  Transmission Date: 20230418
  Serious: Yes (Disabling, Other)
  Sender: FDA-Public Use
  Company Number: US-PFIZER INC-202300029329

PATIENT
  Age: 69 Year
  Sex: Female
  Weight: 57.143 kg

DRUGS (6)
  1. ESTRING [Suspect]
     Active Substance: ESTRADIOL
     Indication: Menopausal symptoms
     Dosage: UNK
  2. ESTRING [Suspect]
     Active Substance: ESTRADIOL
     Indication: Insomnia
     Dosage: UNK, EVERY 3 MONTHS (ONCE EVERY THREE MONTHS)
     Route: 067
     Dates: start: 20221129, end: 202301
  3. ESTRING [Suspect]
     Active Substance: ESTRADIOL
     Indication: Vulvovaginal dryness
  4. ESTRING [Suspect]
     Active Substance: ESTRADIOL
     Indication: Feeling jittery
  5. ESTRING [Suspect]
     Active Substance: ESTRADIOL
     Indication: Uterine prolapse
  6. ESTRING [Suspect]
     Active Substance: ESTRADIOL
     Indication: Vaginal disorder

REACTIONS (4)
  - Device delivery system issue [Not Recovered/Not Resolved]
  - Drug dependence [Not Recovered/Not Resolved]
  - Drug ineffective [Not Recovered/Not Resolved]
  - Product use issue [Unknown]

NARRATIVE: CASE EVENT DATE: 20230102
